FAERS Safety Report 8308148 (Version 4)
Quarter: 2013Q4

REPORT INFORMATION
  Report Type: Spontaneous
  Country: DK (occurrence: None)
  Receive Date: 20111215
  Receipt Date: 20131028
  Transmission Date: 20140711
  Serious: Yes (Other)
  Sender: FDA-Public Use
  Company Number: 2011DK0355

PATIENT
  Age: 12 Year
  Sex: Male

DRUGS (1)
  1. ORFADIN [Suspect]
     Indication: TYROSINAEMIA
     Dosage: (TWICE DAILY)
     Dates: start: 19981215

REACTIONS (5)
  - Epilepsy [None]
  - Cognitive disorder [None]
  - Amino acid level increased [None]
  - Amino acid level decreased [None]
  - Drug ineffective [None]
